FAERS Safety Report 12223324 (Version 1)
Quarter: 2016Q1

REPORT INFORMATION
  Report Type: Spontaneous
  Country: US (occurrence: US)
  Receive Date: 20160330
  Receipt Date: 20160330
  Transmission Date: 20160526
  Serious: No
  Sender: FDA-Public Use
  Company Number: ALCN2014US006217

PATIENT
  Age: 81 Year
  Sex: Female
  Weight: 52.15 kg

DRUGS (1)
  1. BRIMONIDINE [Suspect]
     Active Substance: BRIMONIDINE TARTRATE
     Dosage: UNK UNK, BID
     Route: 047

REACTIONS (1)
  - Rash [Recovered/Resolved]
